FAERS Safety Report 21707544 (Version 2)
Quarter: 2022Q4

REPORT INFORMATION
  Report Type: Spontaneous
  Country: CH (occurrence: CH)
  Receive Date: 20221209
  Receipt Date: 20221214
  Transmission Date: 20230113
  Serious: Yes (Hospitalization, Other)
  Sender: FDA-Public Use
  Company Number: None

PATIENT
  Age: 50 Year
  Sex: Male

DRUGS (18)
  1. AMIKIN [Suspect]
     Active Substance: AMIKACIN SULFATE
     Indication: Product used for unknown indication
     Dates: end: 20221121
  2. AZACTAM [Suspect]
     Active Substance: AZTREONAM
     Indication: Product used for unknown indication
     Dates: end: 20221120
  3. MYFORTIC [Suspect]
     Active Substance: MYCOPHENOLATE SODIUM
     Indication: Product used for unknown indication
     Dates: end: 20221121
  4. CYCLOSPORINE [Suspect]
     Active Substance: CYCLOSPORINE
     Indication: Product used for unknown indication
  5. CYCLOSPORINE [Suspect]
     Active Substance: CYCLOSPORINE
  6. VALGANCICLOVIR [Suspect]
     Active Substance: VALGANCICLOVIR
     Indication: Product used for unknown indication
     Dates: start: 20221107, end: 20221124
  7. VALGANCICLOVIR [Suspect]
     Active Substance: VALGANCICLOVIR
     Dates: start: 20221124
  8. ATOVAQUONE [Suspect]
     Active Substance: ATOVAQUONE
     Indication: Product used for unknown indication
  9. ASPIRIN [Suspect]
     Active Substance: ASPIRIN
     Indication: Product used for unknown indication
  10. ESOMEPRAZOLE [Suspect]
     Active Substance: ESOMEPRAZOLE
     Indication: Product used for unknown indication
  11. LACTATED RINGERS SOLUTION [Concomitant]
     Active Substance: CALCIUM CHLORIDE\POTASSIUM CHLORIDE\SODIUM CHLORIDE\SODIUM LACTATE
     Indication: Product used for unknown indication
     Dosage: (1{TOTAL})
     Route: 041
     Dates: start: 20221119, end: 20221119
  12. MYCOSTATIN [Concomitant]
     Active Substance: NYSTATIN
     Indication: Product used for unknown indication
  13. ENOXAPARIN SODIUM [Concomitant]
     Active Substance: ENOXAPARIN SODIUM
     Indication: Product used for unknown indication
     Route: 058
  14. URSODIOL [Concomitant]
     Active Substance: URSODIOL
     Indication: Product used for unknown indication
  15. LACTITOL [Concomitant]
     Active Substance: LACTITOL
     Indication: Product used for unknown indication
     Route: 048
  16. NALOXONE HYDROCHLORIDE\OXYCODONE HYDROCHLORIDE [Concomitant]
     Active Substance: NALOXONE HYDROCHLORIDE\OXYCODONE HYDROCHLORIDE
     Indication: Product used for unknown indication
     Route: 048
  17. DAFALGAN [Concomitant]
     Active Substance: ACETAMINOPHEN
     Indication: Product used for unknown indication
     Route: 048
  18. Dexeryl [Concomitant]
     Indication: Product used for unknown indication
     Route: 061

REACTIONS (1)
  - Agranulocytosis [Not Recovered/Not Resolved]

NARRATIVE: CASE EVENT DATE: 20221120
